FAERS Safety Report 7127103-5 (Version None)
Quarter: 2010Q4

REPORT INFORMATION
  Report Type: 
  Country: None (occurrence: None)
  Receive Date: 20101129
  Receipt Date: 20100124
  Transmission Date: 20110411
  Serious: No
  Sender: FDA-Public Use
  Company Number: US-PFIZER INC-2010009543

PATIENT
  Sex: Male
  Weight: 81.6 kg

DRUGS (1)
  1. VIAGRA [Suspect]
     Dosage: 100 MG, UNK
     Route: 048
     Dates: start: 20100124

REACTIONS (5)
  - ABDOMINAL DISCOMFORT [None]
  - DYSURIA [None]
  - ERECTION INCREASED [None]
  - FLUSHING [None]
  - HAEMATOMA [None]
